FAERS Safety Report 4963178-7 (Version None)
Quarter: 2006Q2

REPORT INFORMATION
  Report Type: 
  Country: None (occurrence: None)
  Receive Date: 20060405
  Receipt Date: 20051014
  Transmission Date: 20061013
  Serious: Yes (Other)
  Sender: FDA-Public Use
  Company Number: US-MERCK-0510USA07502

PATIENT
  Age: 55 Year
  Sex: Female
  Weight: 66 kg

DRUGS (12)
  1. VIOXX [Suspect]
     Indication: PAIN
     Route: 048
     Dates: start: 20020625, end: 20040601
  2. VIOXX [Suspect]
     Indication: OSTEOARTHRITIS
     Route: 048
     Dates: start: 20020625, end: 20040601
  3. ALTACE [Concomitant]
     Route: 065
  4. LIPITOR [Concomitant]
     Route: 065
  5. METOPROLOL [Concomitant]
     Route: 065
  6. NEURONTIN [Concomitant]
     Route: 065
  7. NASACORT [Concomitant]
     Route: 065
  8. SINGULAIR [Concomitant]
     Route: 048
  9. PEPCID [Concomitant]
     Route: 048
  10. VICODIN [Concomitant]
     Route: 065
  11. HYDROCHLOROTHIAZIDE AND TRIAMTERENE [Concomitant]
     Route: 065
  12. PAPAYA [Concomitant]
     Route: 065

REACTIONS (1)
  - MYOCARDIAL INFARCTION [None]
